FAERS Safety Report 4392378-2 (Version None)
Quarter: 2004Q3

REPORT INFORMATION
  Report Type: 
  Country: None (occurrence: None)
  Receive Date: 20040702
  Receipt Date: 20040309
  Transmission Date: 20050211
  Serious: Yes (Other)
  Sender: FDA-Public Use
  Company Number: 2004UW04454

PATIENT
  Age: 64 Year
  Sex: Male

DRUGS (1)
  1. CRESTOR [Suspect]
     Dates: start: 20040301

REACTIONS (4)
  - ASTHENIA [None]
  - CONJUNCTIVAL HAEMORRHAGE [None]
  - FATIGUE [None]
  - SOMNOLENCE [None]
